FAERS Safety Report 24321831 (Version 4)
Quarter: 2024Q4

REPORT INFORMATION
  Report Type: Spontaneous
  Country: DE (occurrence: DE)
  Receive Date: 20240916
  Receipt Date: 20241115
  Transmission Date: 20250115
  Serious: Yes (Hospitalization, Other)
  Sender: MERCK KGAA
  Company Number: DE-Merck Healthcare KGaA-2024047813

PATIENT
  Age: 81 Year
  Sex: Female
  Weight: 62 kg

DRUGS (1)
  1. EUTHYROX [Suspect]
     Active Substance: LEVOTHYROXINE SODIUM
     Indication: Thyroid disorder
     Dosage: EUTHYROX 50 MCG TABLETS BEFORE BREAKFAST
     Route: 048
     Dates: start: 1993

REACTIONS (9)
  - Constipation [Recovering/Resolving]
  - Upper gastrointestinal haemorrhage [Unknown]
  - Diverticulum intestinal [Unknown]
  - Vitamin D deficiency [Unknown]
  - Blood phosphorus increased [Unknown]
  - Night sweats [Not Recovered/Not Resolved]
  - Weight decreased [Recovering/Resolving]
  - Initial insomnia [Unknown]
  - Middle insomnia [Unknown]

NARRATIVE: CASE EVENT DATE: 20231001
